FAERS Safety Report 7333283-9 (Version None)
Quarter: 2011Q1

REPORT INFORMATION
  Report Type: 
  Country: None (occurrence: None)
  Receive Date: 20110304
  Receipt Date: 20110221
  Transmission Date: 20110831
  Serious: Yes (Other)
  Sender: FDA-Public Use
  Company Number: US-ELI_LILLY_AND_COMPANY-US201102006204

PATIENT
  Age: 32 Year
  Sex: Female
  Weight: 147.39 kg

DRUGS (2)
  1. ZYPREXA [Suspect]
     Indication: BIPOLAR DISORDER
     Dosage: 15 MG, EACH EVENING
     Dates: start: 20110201
  2. ZYPREXA ZYDIS [Suspect]
     Indication: BIPOLAR DISORDER
     Dosage: 15 MG, UNK
     Dates: start: 20110201, end: 20110201

REACTIONS (2)
  - WEIGHT DECREASED [None]
  - INCREASED APPETITE [None]
